FAERS Safety Report 17895686 (Version 1)
Quarter: 2020Q2

REPORT INFORMATION
  Report Type: Spontaneous
  Country: FR (occurrence: FR)
  Receive Date: 20200615
  Receipt Date: 20200615
  Transmission Date: 20200714
  Serious: Yes (Other)
  Sender: FDA-Public Use
  Company Number: FR-TEVA-2020-FR-1788796

PATIENT
  Age: 56 Year
  Sex: Male

DRUGS (5)
  1. AMBENONIUM CHLORIDE [Suspect]
     Active Substance: AMBENONIUM CHLORIDE
     Indication: OCULAR MYASTHENIA
     Dosage: UP TO 30 MG PER DAY FOR 6 WEEKS
     Route: 065
  2. ATORVASTATIN [Suspect]
     Active Substance: ATORVASTATIN
     Indication: HYPERCHOLESTEROLAEMIA
     Dosage: 40 MILLIGRAM DAILY;
     Route: 065
  3. ASPIRIN. [Concomitant]
     Active Substance: ASPIRIN
     Route: 065
  4. ESOMEPRAZOLE. [Concomitant]
     Active Substance: ESOMEPRAZOLE MAGNESIUM
     Route: 065
  5. BISOPROLOL [Concomitant]
     Active Substance: BISOPROLOL
     Indication: CORONARY ARTERY DISEASE
     Route: 065

REACTIONS (2)
  - Ocular myasthenia [Recovered/Resolved]
  - Drug ineffective [Unknown]
